FAERS Safety Report 4750026-3 (Version None)
Quarter: 2005Q3

REPORT INFORMATION
  Report Type: 
  Country: None (occurrence: None)
  Receive Date: 20050822
  Receipt Date: 20050816
  Transmission Date: 20060218
  Serious: Yes (Life-Threatening)
  Sender: FDA-Public Use
  Company Number: JP-MERCK-0508USA03106

PATIENT

DRUGS (2)
  1. PRIMAXIN [Suspect]
     Route: 041
     Dates: start: 20050812, end: 20050813
  2. PRIMAXIN [Suspect]
     Route: 041
     Dates: start: 20050815, end: 20050815

REACTIONS (2)
  - CONVULSION [None]
  - LOSS OF CONSCIOUSNESS [None]
